FAERS Safety Report 12888670 (Version 1)
Quarter: 2016Q4

REPORT INFORMATION
  Report Type: Report from Study
  Country: BR (occurrence: BR)
  Receive Date: 20161027
  Receipt Date: 20161027
  Transmission Date: 20170207
  Serious: Yes (Other)
  Sender: FDA-Public Use
  Company Number: PHHY2016BR147551

PATIENT
  Age: 66 Year
  Sex: Female
  Weight: 96 kg

DRUGS (5)
  1. VALSARTAN. [Concomitant]
     Active Substance: VALSARTAN
     Indication: BLOOD PRESSURE ABNORMAL
     Dosage: 1 DF, QD IN THE MORNING
     Route: 065
  2. DIOVAN AMLO FIX [Suspect]
     Active Substance: AMLODIPINE\VALSARTAN
     Indication: HYPERTENSION
     Dosage: 1 DF (AMLODIPINE 5 MG, VALSARTAN 160 MG), QD (4 YEARS AGO)
     Route: 048
  3. ENALAPRIL [Suspect]
     Active Substance: ENALAPRIL
     Indication: BLOOD PRESSURE ABNORMAL
     Dosage: 1 DF, QD (IN THE MORNING AT 8.00 AM) (10 YEARS AGO)
     Route: 048
  4. FLUX [Concomitant]
     Indication: PRODUCT USED FOR UNKNOWN INDICATION
     Dosage: 1.5 MG, QD (SR)
     Route: 065
  5. NEBIVOLOL HYDROCHLORIDE [Concomitant]
     Active Substance: NEBIVOLOL HYDROCHLORIDE
     Indication: PRODUCT USED FOR UNKNOWN INDICATION
     Route: 065

REACTIONS (12)
  - Pneumonia [Recovering/Resolving]
  - Swelling [Recovering/Resolving]
  - Cough [Unknown]
  - Rhinitis allergic [Unknown]
  - Muscle spasms [Recovered/Resolved]
  - Gait disturbance [Unknown]
  - Hypersensitivity [Unknown]
  - Pollakiuria [Unknown]
  - Fatigue [Unknown]
  - Heart rate increased [Recovering/Resolving]
  - Feeling abnormal [Unknown]
  - Sinusitis [Unknown]

NARRATIVE: CASE EVENT DATE: 201608
